FAERS Safety Report 20765133 (Version 2)
Quarter: 2022Q2

REPORT INFORMATION
  Report Type: Spontaneous
  Country: US (occurrence: US)
  Receive Date: 20220428
  Receipt Date: 20220506
  Transmission Date: 20220721
  Serious: Yes (Death, Other)
  Sender: FDA-Public Use
  Company Number: US-009507513-2204USA008559

PATIENT
  Sex: Female
  Weight: 62 kg

DRUGS (6)
  1. KEYTRUDA [Suspect]
     Active Substance: PEMBROLIZUMAB
     Indication: Breast cancer metastatic
     Dosage: 200 MILLIGRAM
     Route: 042
     Dates: start: 20210526, end: 20210526
  2. KEYTRUDA [Suspect]
     Active Substance: PEMBROLIZUMAB
     Indication: Metastases to central nervous system
     Dosage: 200 MILLIGRAM
     Route: 042
     Dates: start: 20210616, end: 20210616
  3. KEYTRUDA [Suspect]
     Active Substance: PEMBROLIZUMAB
     Indication: Metastases to bone
  4. ERIBULIN [Suspect]
     Active Substance: ERIBULIN
     Indication: Breast cancer metastatic
     Dosage: UNK
     Dates: end: 20210922
  5. ERIBULIN [Suspect]
     Active Substance: ERIBULIN
     Indication: Metastases to central nervous system
  6. ERIBULIN [Suspect]
     Active Substance: ERIBULIN
     Indication: Metastases to bone

REACTIONS (2)
  - Death [Fatal]
  - Malignant neoplasm progression [Unknown]

NARRATIVE: CASE EVENT DATE: 20210101
